FAERS Safety Report 22605283 (Version 1)
Quarter: 2023Q2

REPORT INFORMATION
  Report Type: Report from Study
  Country: DE (occurrence: DE)
  Receive Date: 20230615
  Receipt Date: 20230615
  Transmission Date: 20230722
  Serious: Yes (Hospitalization, Other)
  Sender: FDA-Public Use
  Company Number: DE-TAKEDA-DE201402079

PATIENT
  Age: 4 Year
  Sex: Male

DRUGS (8)
  1. IDURSULFASE [Suspect]
     Active Substance: IDURSULFASE
     Indication: Mucopolysaccharidosis II
     Dosage: 0.32 MILLIGRAM/KILOGRAM, 1/WEEK
     Route: 042
     Dates: start: 20100310, end: 20100719
  2. MELATONIN [Concomitant]
     Active Substance: MELATONIN
     Indication: Attention deficit hyperactivity disorder
     Dosage: 2 MILLIGRAM, QD
     Route: 048
     Dates: start: 20120709
  3. MELATONIN [Concomitant]
     Active Substance: MELATONIN
     Indication: Psychomotor hyperactivity
     Dosage: UNK
     Route: 048
     Dates: start: 20120709, end: 20140701
  4. CHOLECALCIFEROL [Concomitant]
     Active Substance: CHOLECALCIFEROL
     Indication: Vitamin D deficiency
     Dosage: 100 INTERNATIONAL UNIT
     Route: 065
  5. METHYLPHENIDATE [Concomitant]
     Active Substance: METHYLPHENIDATE
     Indication: Abnormal behaviour
     Dosage: UNK
     Route: 048
     Dates: start: 2012, end: 2012
  6. DIAZEPAM [Concomitant]
     Active Substance: DIAZEPAM
     Indication: Febrile convulsion
     Dosage: UNK
     Route: 065
     Dates: start: 2011, end: 2011
  7. RISPERDAL [Concomitant]
     Active Substance: RISPERIDONE
     Indication: Psychomotor hyperactivity
     Dosage: UNK
     Route: 048
     Dates: start: 2011, end: 20120201
  8. RISPERDAL [Concomitant]
     Active Substance: RISPERIDONE
     Dosage: UNK
     Route: 048
     Dates: start: 20120901

REACTIONS (3)
  - Eustachian tube disorder [Recovered/Resolved]
  - Adenoiditis [Recovered/Resolved]
  - Ear infection [Recovered/Resolved]

NARRATIVE: CASE EVENT DATE: 20120709
